FAERS Safety Report 5078222-9 (Version None)
Quarter: 2006Q3

REPORT INFORMATION
  Report Type: 
  Country: None (occurrence: None)
  Receive Date: 20060811
  Receipt Date: 20060803
  Transmission Date: 20061208
  Serious: Yes (Hospitalization)
  Sender: FDA-Public Use
  Company Number: US-BRISTOL-MYERS SQUIBB COMPANY-13464193

PATIENT
  Age: 64 Year
  Sex: Female
  Weight: 59 kg

DRUGS (3)
  1. ERBITUX [Suspect]
     Indication: PANCREATIC CARCINOMA
     Dates: start: 20060104
  2. CYCLOPHOSPHAMIDE [Suspect]
     Indication: PANCREATIC CARCINOMA
     Dosage: ADDITIONAL DOSAGE RECEIVED DATE: 02/01/2006, 02/19/2006,03/14/2006,04/02/2006,04/26/2006
     Dates: start: 20060426, end: 20060426
  3. GVAX [Suspect]
     Indication: PANCREATIC CARCINOMA
     Dates: start: 20060427, end: 20060427

REACTIONS (4)
  - BILE DUCT OBSTRUCTION [None]
  - BLOOD GLUCOSE INCREASED [None]
  - HEPATIC FUNCTION ABNORMAL [None]
  - PULMONARY EMBOLISM [None]
